FAERS Safety Report 6027327-4 (Version None)
Quarter: 2009Q1

REPORT INFORMATION
  Report Type: 
  Country: None (occurrence: None)
  Receive Date: 20090105
  Receipt Date: 20081229
  Transmission Date: 20090719
  Serious: Yes (Life-Threatening, Hospitalization)
  Sender: FDA-Public Use
  Company Number: B0547339A

PATIENT
  Age: 89 Year
  Sex: Female
  Weight: 46 kg

DRUGS (8)
  1. VALTREX [Suspect]
     Indication: HERPES ZOSTER
     Dosage: 1000MG THREE TIMES PER DAY
     Route: 048
     Dates: start: 20081117, end: 20081119
  2. THYRADIN [Concomitant]
     Dosage: 50MG PER DAY
     Route: 048
     Dates: start: 20081119
  3. NU-LOTAN [Concomitant]
     Dosage: 50MG PER DAY
     Route: 048
     Dates: start: 20081119
  4. LIPITOR [Concomitant]
     Dosage: 10MG PER DAY
     Route: 048
     Dates: start: 20081119
  5. PROTECADIN [Concomitant]
     Dosage: 10MG PER DAY
     Route: 048
     Dates: start: 20081119
  6. GLUFAST [Concomitant]
     Dosage: 10MG PER DAY
     Route: 048
     Dates: start: 20081119
  7. BASEN [Concomitant]
     Dosage: .6MG PER DAY
     Route: 048
     Dates: start: 20081119
  8. CYANOCOBALAMIN [Concomitant]
     Dosage: 1500MCG PER DAY
     Route: 048
     Dates: start: 20081119

REACTIONS (5)
  - CHEST PAIN [None]
  - DEPRESSED LEVEL OF CONSCIOUSNESS [None]
  - HEADACHE [None]
  - RENAL FAILURE ACUTE [None]
  - RESTLESSNESS [None]
